FAERS Safety Report 16911747 (Version 10)
Quarter: 2020Q1

REPORT INFORMATION
  Report Type: Report from Study
  Country: US (occurrence: US)
  Receive Date: 20191014
  Receipt Date: 20200220
  Transmission Date: 20200409
  Serious: Yes (Hospitalization, Other)
  Sender: FDA-Public Use
  Company Number: US-SA-2017SA012269

PATIENT
  Age: 40 Year
  Sex: Female

DRUGS (2)
  1. METHYLPREDNISOLONE. [Suspect]
     Active Substance: METHYLPREDNISOLONE
  2. ALEMTUZUMAB [Suspect]
     Active Substance: ALEMTUZUMAB
     Indication: MULTIPLE SCLEROSIS
     Dosage: 12 MG,QD
     Route: 041
     Dates: start: 20170116, end: 20170120

REACTIONS (30)
  - Blood pressure decreased [Recovering/Resolving]
  - Rash pruritic [Recovered/Resolved]
  - Contusion [Unknown]
  - Sinusitis [Recovered/Resolved]
  - Rhinorrhoea [Recovered/Resolved]
  - Diarrhoea [Not Recovered/Not Resolved]
  - Malaise [Unknown]
  - Dyspnoea [Recovered/Resolved]
  - Sinus pain [Recovered/Resolved]
  - Chromaturia [Unknown]
  - Back pain [Not Recovered/Not Resolved]
  - Rash [Unknown]
  - Leukocytosis [Unknown]
  - Ear discomfort [Not Recovered/Not Resolved]
  - Blood glucose increased [Unknown]
  - White blood cell count increased [Recovering/Resolving]
  - Sinusitis bacterial [Recovered/Resolved]
  - Gastroenteritis viral [Not Recovered/Not Resolved]
  - Pyrexia [Recovered/Resolved]
  - Sinus congestion [Recovered/Resolved]
  - Fatigue [Recovering/Resolving]
  - Urticaria [Unknown]
  - Headache [Not Recovered/Not Resolved]
  - Respiratory tract congestion [Not Recovered/Not Resolved]
  - Cough [Not Recovered/Not Resolved]
  - Pneumonia [Recovered/Resolved]
  - Blood potassium decreased [Unknown]
  - Abdominal pain upper [Not Recovered/Not Resolved]
  - Hyperglycaemia [Unknown]
  - Drug exposure before pregnancy [Unknown]

NARRATIVE: CASE EVENT DATE: 201701
